FAERS Safety Report 9301785 (Version 1)
Quarter: 2013Q2

REPORT INFORMATION
  Report Type: Spontaneous
  Country: US (occurrence: US)
  Receive Date: 20130521
  Receipt Date: 20130521
  Transmission Date: 20140414
  Serious: Yes (Death)
  Sender: FDA-Public Use
  Company Number: US-TEVA-336946USA

PATIENT
  Sex: Female
  Weight: 52.21 kg

DRUGS (7)
  1. ACTIQ [Suspect]
     Dosage: 1200 MICROGRAM DAILY;
     Route: 002
     Dates: start: 20120409
  2. IPRATROPIUM BROMIDE [Concomitant]
     Dates: start: 20120331
  3. LORAZEPAM [Concomitant]
     Indication: ANXIETY
     Dates: start: 20120331
  4. ONDANSETRON [Concomitant]
     Indication: NAUSEA
     Dosage: PRN
     Route: 048
  5. ONDANSETRON [Concomitant]
     Indication: VOMITING
  6. HYDROMORPHONE HYDROCHLORIDE [Concomitant]
     Indication: PAIN
     Route: 048
     Dates: start: 20120401
  7. SALBUTAMOL [Concomitant]
     Route: 055
     Dates: start: 20120331

REACTIONS (1)
  - Death [Fatal]
